FAERS Safety Report 7957571-8 (Version None)
Quarter: 2011Q4

REPORT INFORMATION
  Report Type: 
  Country: None (occurrence: None)
  Receive Date: 20111205
  Receipt Date: 20111130
  Transmission Date: 20120403
  Serious: Yes (Hospitalization)
  Sender: FDA-Public Use
  Company Number: FR-GLAXOSMITHKLINE-B0765964A

PATIENT
  Age: 52 Year
  Sex: Male

DRUGS (1)
  1. LAMICTAL [Suspect]
     Indication: ENCEPHALITIS
     Route: 048
     Dates: start: 20100301, end: 20110801

REACTIONS (2)
  - LUNG DISORDER [None]
  - OFF LABEL USE [None]
